FAERS Safety Report 13377765 (Version 2)
Quarter: 2018Q3

REPORT INFORMATION
  Report Type: Spontaneous
  Country: GB (occurrence: GB)
  Receive Date: 20170328
  Receipt Date: 20180820
  Transmission Date: 20181010
  Serious: Yes (Other)
  Sender: FDA-Public Use
  Company Number: GB-TEVA-276426ISR

PATIENT
  Age: 24 Year
  Sex: Male
  Weight: 88.9 kg

DRUGS (5)
  1. CITALOPRAM [Suspect]
     Active Substance: CITALOPRAM HYDROBROMIDE
     Dosage: 40 MILLIGRAM DAILY;
     Dates: start: 200812, end: 200901
  2. LORAZEPAM. [Concomitant]
     Active Substance: LORAZEPAM
     Indication: PRESYNCOPE
     Dosage: 3 MILLIGRAM DAILY;
     Route: 048
     Dates: start: 20070622, end: 20100430
  3. LORAZEPAM. [Concomitant]
     Active Substance: LORAZEPAM
     Indication: PRESYNCOPE
     Dosage: 1.5 MILLIGRAM DAILY;
     Route: 048
     Dates: start: 20100430
  4. CITALOPRAM [Suspect]
     Active Substance: CITALOPRAM HYDROBROMIDE
     Indication: OBSESSIVE-COMPULSIVE DISORDER
     Dosage: 20 MILLIGRAM DAILY;
     Dates: start: 200711
  5. FLUVOXAMINE [Concomitant]
     Active Substance: FLUVOXAMINE
     Route: 065

REACTIONS (15)
  - Libido decreased [Not Recovered/Not Resolved]
  - Emotional disorder [Not Recovered/Not Resolved]
  - Suicidal ideation [Not Recovered/Not Resolved]
  - Premature ejaculation [Recovered/Resolved]
  - Sexual dysfunction [Recovering/Resolving]
  - Orgasmic sensation decreased [Not Recovered/Not Resolved]
  - Self-injurious ideation [Not Recovered/Not Resolved]
  - Depressed mood [Not Recovered/Not Resolved]
  - Genital hypoaesthesia [Not Recovered/Not Resolved]
  - Loss of libido [Not Recovered/Not Resolved]
  - Depression [Not Recovered/Not Resolved]
  - Sexual dysfunction [Not Recovered/Not Resolved]
  - Suicide attempt [Unknown]
  - Anorgasmia [Not Recovered/Not Resolved]
  - Headache [Not Recovered/Not Resolved]

NARRATIVE: CASE EVENT DATE: 2007
